FAERS Safety Report 8034455-0 (Version None)
Quarter: 2012Q1

REPORT INFORMATION
  Report Type: 
  Country: None (occurrence: None)
  Receive Date: 20120110
  Receipt Date: 20120103
  Transmission Date: 20120608
  Serious: Yes (Hospitalization)
  Sender: FDA-Public Use
  Company Number: US-ABBOTT-12P-163-0888777-00

PATIENT
  Sex: Male
  Weight: 113.41 kg

DRUGS (4)
  1. PRAVASTATIN [Concomitant]
     Indication: BLOOD CHOLESTEROL INCREASED
     Dates: start: 20100101
  2. EXFORGE HCT [Concomitant]
     Indication: HYPERTENSION
     Dates: start: 20110901
  3. ASPIRIN [Concomitant]
     Indication: PROPHYLAXIS
     Dates: start: 20070101
  4. HUMIRA [Suspect]
     Indication: PSORIASIS
     Route: 058
     Dates: start: 20111129, end: 20111220

REACTIONS (1)
  - OEDEMA [None]
